FAERS Safety Report 21058788 (Version 1)
Quarter: 2022Q3

REPORT INFORMATION
  Report Type: Report from Study
  Country: CA (occurrence: CA)
  Receive Date: 20220708
  Receipt Date: 20220708
  Transmission Date: 20221027
  Serious: Yes (Death)
  Sender: FDA-Public Use
  Company Number: CA-CHIESI-2022CHF00990

PATIENT
  Age: 62 Year
  Sex: Male

DRUGS (2)
  1. DEFERIPRONE [Suspect]
     Active Substance: DEFERIPRONE
     Indication: Thalassaemia beta
     Dosage: 1000 MILLIGRAM, TID
     Route: 048
     Dates: start: 20211122, end: 20220228
  2. DEFERIPRONE [Suspect]
     Active Substance: DEFERIPRONE
     Dosage: 1000 MILLIGRAM, BID
     Route: 048
     Dates: start: 20211230

REACTIONS (2)
  - Death [Fatal]
  - Arthralgia [Recovered/Resolved]

NARRATIVE: CASE EVENT DATE: 20211227
